FAERS Safety Report 15000671 (Version 1)
Quarter: 2018Q2

REPORT INFORMATION
  Report Type: Spontaneous
  Country: JP (occurrence: JP)
  Receive Date: 20180612
  Receipt Date: 20180612
  Transmission Date: 20180711
  Serious: Yes (Death)
  Sender: FDA-Public Use
  Company Number: JP-BAYER-2018-108619

PATIENT
  Sex: Male

DRUGS (10)
  1. BAYASPIRIN 100 MG [Suspect]
     Active Substance: ASPIRIN
  2. PREDNISOLONE. [Concomitant]
     Active Substance: PREDNISOLONE
  3. AMEZINIUM METILSULFATE [Concomitant]
     Active Substance: AMEZINIUM METILSULFATE
  4. CLOXAZOLAM [Concomitant]
     Active Substance: CLOXAZOLAM
  5. MEDAZEPAM [Concomitant]
     Active Substance: MEDAZEPAM
  6. AZOSEMIDE [Concomitant]
     Active Substance: AZOSEMIDE
  7. CALCITRIOL. [Concomitant]
     Active Substance: CALCITRIOL
  8. PRASUGREL. [Interacting]
     Active Substance: PRASUGREL
  9. TRIAZOLAM. [Concomitant]
     Active Substance: TRIAZOLAM
  10. FEBUXOSTAT. [Concomitant]
     Active Substance: FEBUXOSTAT

REACTIONS (4)
  - Labelled drug-drug interaction medication error [Fatal]
  - Epistaxis [Fatal]
  - Obstructive airways disorder [Fatal]
  - Drug administration error [Fatal]
